FAERS Safety Report 19970402 (Version 2)
Quarter: 2021Q4

REPORT INFORMATION
  Report Type: Spontaneous
  Country: JP (occurrence: JP)
  Receive Date: 20211019
  Receipt Date: 20211028
  Transmission Date: 20220303
  Serious: Yes (Death)
  Sender: FDA-Public Use
  Company Number: JP-BAYER-2021A231794

PATIENT
  Age: 80 Year
  Sex: Female

DRUGS (6)
  1. STIVARGA [Suspect]
     Active Substance: REGORAFENIB
     Indication: Colorectal cancer
     Dosage: DAILY DOSE 80 MG, ON FOR 3WEEKS AND OFF FOR 1 WEEK
     Route: 048
     Dates: start: 20180411
  2. STIVARGA [Suspect]
     Active Substance: REGORAFENIB
     Indication: Colon cancer
  3. STIVARGA [Suspect]
     Active Substance: REGORAFENIB
     Indication: Metastases to lymph nodes
  4. LOXOPROFEN [Concomitant]
     Active Substance: LOXOPROFEN
  5. MAGNESIUM OXIDE [Concomitant]
     Active Substance: MAGNESIUM OXIDE
  6. OXYCONTIN [Concomitant]
     Active Substance: OXYCODONE HYDROCHLORIDE

REACTIONS (5)
  - Death [Fatal]
  - Diarrhoea [None]
  - Vomiting [None]
  - Decreased appetite [None]
  - Off label use [None]

NARRATIVE: CASE EVENT DATE: 20180401
